FAERS Safety Report 14534672 (Version 1)
Quarter: 2018Q1

REPORT INFORMATION
  Report Type: Spontaneous
  Country: NL (occurrence: NL)
  Receive Date: 20180215
  Receipt Date: 20180215
  Transmission Date: 20180509
  Serious: Yes (Hospitalization)
  Sender: FDA-Public Use
  Company Number: NL-AUROBINDO-AUR-APL-2018-006843

PATIENT
  Age: 28 Year
  Sex: Female

DRUGS (3)
  1. FLUTICASON [Concomitant]
     Active Substance: FLUTICASONE
     Indication: PRODUCT USED FOR UNKNOWN INDICATION
     Dosage: ZONODIG
  2. LAMOTRIGINE 200MG [Suspect]
     Active Substance: LAMOTRIGINE
     Indication: BIPOLAR II DISORDER
     Dosage: 200 MG, UNK
     Route: 065
     Dates: start: 201712
  3. OXAZEPAM. [Concomitant]
     Active Substance: OXAZEPAM
     Indication: PRODUCT USED FOR UNKNOWN INDICATION
     Dosage: ZONODIG

REACTIONS (5)
  - Dissociation [Recovering/Resolving]
  - Therapeutic response unexpected [Recovering/Resolving]
  - Suicidal ideation [Recovering/Resolving]
  - Psychiatric decompensation [Recovering/Resolving]
  - Psychotic symptom [Recovering/Resolving]

NARRATIVE: CASE EVENT DATE: 20180102
